FAERS Safety Report 22525255 (Version 2)
Quarter: 2023Q4

REPORT INFORMATION
  Report Type: Spontaneous
  Country: BR (occurrence: BR)
  Receive Date: 20230606
  Receipt Date: 20231111
  Transmission Date: 20240110
  Serious: Yes (Other)
  Sender: FDA-Public Use
  Company Number: BR-JNJFOC-20230548820

PATIENT
  Sex: Male

DRUGS (1)
  1. REMICADE [Suspect]
     Active Substance: INFLIXIMAB
     Indication: Product used for unknown indication
     Route: 041

REACTIONS (3)
  - Pancytopenia [Not Recovered/Not Resolved]
  - Aspergillus infection [Not Recovered/Not Resolved]
  - Influenza like illness [Unknown]
